FAERS Safety Report 24560489 (Version 3)
Quarter: 2024Q4

REPORT INFORMATION
  Report Type: Spontaneous
  Country: US (occurrence: US)
  Receive Date: 20241029
  Receipt Date: 20241226
  Transmission Date: 20250115
  Serious: Yes (Hospitalization, Other)
  Sender: BIOGEN
  Company Number: US-BIOGEN-2024BI01288044

PATIENT
  Sex: Male
  Weight: 82 kg

DRUGS (11)
  1. QALSODY [Suspect]
     Active Substance: TOFERSEN
     Indication: Amyotrophic lateral sclerosis
     Route: 050
     Dates: start: 202406, end: 20241004
  2. QALSODY [Suspect]
     Active Substance: TOFERSEN
     Route: 050
     Dates: start: 20240614
  3. VIIBRYD [Suspect]
     Active Substance: VILAZODONE HYDROCHLORIDE
     Indication: Depression
     Route: 050
     Dates: end: 202411
  4. RILUZOLE [Concomitant]
     Active Substance: RILUZOLE
     Indication: Amyotrophic lateral sclerosis
     Dosage: TAKE 1 TABLET BY MOUTH 2 TIMES A DAY BEFORE MEALS
     Route: 050
     Dates: start: 202404
  5. RADICAVA ORS [Concomitant]
     Active Substance: EDARAVONE
     Indication: Amyotrophic lateral sclerosis
     Dosage: 105MG/5ML DAILY FOR 50ML, 10 DAYS OUT OF 14, THEN 14 DAY BREAK, THEN REPEAT
     Route: 050
     Dates: start: 202405
  6. BUPROPION [Concomitant]
     Active Substance: BUPROPION
     Indication: Product used for unknown indication
     Route: 050
  7. CLONAZEPAM [Concomitant]
     Active Substance: CLONAZEPAM
     Indication: Anxiety
     Dosage: TAKE 1 TAB BY MOUTH DAILY AS NEEDED CAN TAKE UP TO TWO A DAY
     Route: 050
  8. MELATONIN [Concomitant]
     Active Substance: MELATONIN
     Indication: Product used for unknown indication
     Dosage: AT BED TIME
     Route: 050
  9. TRELEGY ELLIPTA [Concomitant]
     Active Substance: FLUTICASONE FUROATE\UMECLIDINIUM BROMIDE\VILANTEROL TRIFENATATE
     Indication: Product used for unknown indication
     Dosage: 100-62.5-25 MCG, INHALE 1 PUFF DAILY
     Route: 050
  10. VITAMIN B12 [Concomitant]
     Active Substance: CYANOCOBALAMIN
     Indication: Product used for unknown indication
     Dosage: TAKE 1 CAPSULE BY MOUTH DAILY, INJECTIONS
     Route: 050
  11. SIMETHICONE (DIMETHICONE) [Concomitant]
     Active Substance: DIMETHICONE
     Indication: Abdominal distension
     Route: 050

REACTIONS (11)
  - CSF pressure increased [Unknown]
  - Metabolic acidosis [Unknown]
  - Central nervous system viral infection [Unknown]
  - Meningitis aseptic [Unknown]
  - Papilloedema [Unknown]
  - Diarrhoea [Unknown]
  - Arthropod bite [Unknown]
  - Allodynia [Unknown]
  - Discomfort [Unknown]
  - Tinnitus [Unknown]
  - Decreased appetite [Unknown]

NARRATIVE: CASE EVENT DATE: 20240101
